FAERS Safety Report 8325564-7 (Version None)
Quarter: 2012Q2

REPORT INFORMATION
  Report Type: 
  Country: None (occurrence: None)
  Receive Date: 20120501
  Receipt Date: 20120420
  Transmission Date: 20120825
  Serious: Yes (Hospitalization)
  Sender: FDA-Public Use
  Company Number: US-JNJFOC-20120410843

PATIENT
  Sex: Female
  Weight: 30.3 kg

DRUGS (2)
  1. PREDNISONE [Concomitant]
  2. INFLIXIMAB, RECOMBINANT [Suspect]
     Indication: INFLAMMATORY BOWEL DISEASE
     Route: 042
     Dates: start: 20110413, end: 20111014

REACTIONS (3)
  - UPPER RESPIRATORY TRACT INFECTION [None]
  - GASTRITIS VIRAL [None]
  - HYPONATRAEMIA [None]
